FAERS Safety Report 9106417 (Version 1)
Quarter: 2013Q1

REPORT INFORMATION
  Report Type: Report from Study
  Country: GB (occurrence: GB)
  Receive Date: 20130221
  Receipt Date: 20130221
  Transmission Date: 20140127
  Serious: Yes (Hospitalization, Other)
  Sender: FDA-Public Use
  Company Number: GB-ROCHE-1192240

PATIENT
  Sex: 0

DRUGS (1)
  1. CEFTRIAXONE [Suspect]
     Indication: LYME DISEASE
     Route: 042

REACTIONS (15)
  - Device related infection [Unknown]
  - Neutropenia [Unknown]
  - Anaphylactic reaction [Unknown]
  - Rash [Unknown]
  - Agranulocytosis [Unknown]
  - Hypersensitivity [Unknown]
  - Hepatic function abnormal [Unknown]
  - Headache [Unknown]
  - Nausea [Unknown]
  - Fatigue [Unknown]
  - Oral candidiasis [Unknown]
  - Herpes zoster [Unknown]
  - Dyspepsia [Unknown]
  - Clostridium difficile colitis [Unknown]
  - Diarrhoea [Unknown]
